FAERS Safety Report 21578544 (Version 1)
Quarter: 2022Q4

REPORT INFORMATION
  Report Type: Spontaneous
  Country: US (occurrence: None)
  Receive Date: 20221110
  Receipt Date: 20221110
  Transmission Date: 20230112
  Serious: Yes (Other)
  Sender: FDA-Public Use
  Company Number: None

PATIENT
  Age: 54 Year
  Sex: Female
  Weight: 108 kg

DRUGS (2)
  1. IBRANCE [Suspect]
     Active Substance: PALBOCICLIB
     Indication: Breast cancer
     Dosage: OTHER QUANTITY : 21 TABLET(S);?FREQUENCY : DAILY;?
     Route: 048
     Dates: start: 20221024, end: 20221108
  2. ANASTROZOLE [Concomitant]
     Active Substance: ANASTROZOLE

REACTIONS (3)
  - Headache [None]
  - Delusion [None]
  - Feeling abnormal [None]

NARRATIVE: CASE EVENT DATE: 20221108
